FAERS Safety Report 8170068-8 (Version None)
Quarter: 2012Q1

REPORT INFORMATION
  Report Type: 
  Country: None (occurrence: None)
  Receive Date: 20120228
  Receipt Date: 20120214
  Transmission Date: 20120608
  Serious: Yes (Life-Threatening, Hospitalization)
  Sender: FDA-Public Use
  Company Number: NL-UCBSA-051359

PATIENT
  Age: 18 Year
  Sex: Male
  Weight: 70 kg

DRUGS (4)
  1. METHYLPHENIDATE HCL [Suspect]
     Indication: PSYCHOMOTOR HYPERACTIVITY
     Dates: start: 20081001
  2. CONCERTA [Suspect]
     Indication: ATTENTION DEFICIT/HYPERACTIVITY DISORDER
     Dates: start: 20081001
  3. METHYLPHENIDATE HCL [Suspect]
     Indication: ATTENTION DEFICIT/HYPERACTIVITY DISORDER
     Dates: start: 20081001
  4. METHYLPHENIDATE HCL [Suspect]
     Indication: ATTENTION DEFICIT/HYPERACTIVITY DISORDER
     Dates: start: 20081001

REACTIONS (1)
  - ACUTE MYELOID LEUKAEMIA [None]
